FAERS Safety Report 14491138 (Version 1)
Quarter: 2018Q1

REPORT INFORMATION
  Report Type: Spontaneous
  Country: CA (occurrence: CA)
  Receive Date: 20180206
  Receipt Date: 20180206
  Transmission Date: 20180509
  Serious: Yes (Life-Threatening, Other)
  Sender: FDA-Public Use
  Company Number: CA-BAUSCH-BL-2018-002870

PATIENT
  Age: 59 Year
  Sex: Female

DRUGS (7)
  1. GENTAMICIN SULFATE. [Suspect]
     Active Substance: GENTAMICIN SULFATE
     Indication: LISTERIOSIS
     Route: 042
  2. VANCOMYCIN HYDROCHLORIDE. [Suspect]
     Active Substance: VANCOMYCIN HYDROCHLORIDE
     Indication: PERITONEAL CLOUDY EFFLUENT
     Route: 033
  3. CEFTAZIDIME SODIUM FOR INJECTION, USP [Suspect]
     Active Substance: CEFTAZIDIME SODIUM
     Indication: PERITONEAL CLOUDY EFFLUENT
     Dosage: POWDER FOR SOLUTION INTRAMUSCULAR
     Route: 033
  4. AMPICILLIN TRIHYDRATE. [Suspect]
     Active Substance: AMPICILLIN TRIHYDRATE
     Indication: LISTERIOSIS
     Route: 042
  5. VANCOMYCIN HYDROCHLORIDE. [Suspect]
     Active Substance: VANCOMYCIN HYDROCHLORIDE
     Indication: LISTERIOSIS
  6. CEFTAZIDIME SODIUM FOR INJECTION, USP [Suspect]
     Active Substance: CEFTAZIDIME SODIUM
     Indication: LISTERIOSIS
  7. SULFAMETHOXAZOLE AND TRIMETHOPRIM [Suspect]
     Active Substance: SULFAMETHOXAZOLE\TRIMETHOPRIM
     Indication: LISTERIOSIS
     Route: 042

REACTIONS (2)
  - Drug hypersensitivity [Not Recovered/Not Resolved]
  - Drug ineffective [Not Recovered/Not Resolved]
